FAERS Safety Report 16267849 (Version 1)
Quarter: 2019Q2

REPORT INFORMATION
  Report Type: Spontaneous
  Country: FR (occurrence: FR)
  Receive Date: 20190503
  Receipt Date: 20190503
  Transmission Date: 20190711
  Serious: Yes (Other)
  Sender: FDA-Public Use
  Company Number: FR-TEVA-2019-FR-1043511

PATIENT
  Age: 34 Year
  Sex: Male

DRUGS (1)
  1. ACTIQ [Suspect]
     Active Substance: FENTANYL CITRATE
     Route: 002
     Dates: start: 2012

REACTIONS (2)
  - Drug abuse [Not Recovered/Not Resolved]
  - Drug use disorder [Not Recovered/Not Resolved]
